FAERS Safety Report 10733231 (Version 8)
Quarter: 2015Q2

REPORT INFORMATION
  Report Type: Spontaneous
  Country: US (occurrence: US)
  Receive Date: 20150123
  Receipt Date: 20150612
  Transmission Date: 20150821
  Serious: Yes (Hospitalization, Other)
  Sender: FDA-Public Use
  Company Number: US-009507513-1010USA00668

PATIENT
  Sex: Female
  Weight: 70.75 kg

DRUGS (4)
  1. FOSAMAX [Suspect]
     Active Substance: ALENDRONATE SODIUM
     Dosage: 10 MG, UNK
     Route: 048
     Dates: start: 20000328, end: 20010827
  2. ACTONEL [Suspect]
     Active Substance: RISEDRONATE SODIUM
     Indication: BONE DENSITY DECREASED
     Dosage: 35 MG, UNK
     Dates: start: 200609
  3. FOSAMAX [Suspect]
     Active Substance: ALENDRONATE SODIUM
     Indication: BONE DENSITY DECREASED
     Dosage: 70 MG, QW
     Route: 048
     Dates: start: 20010912, end: 200702
  4. FOSAMAX PLUS D [Suspect]
     Active Substance: ALENDRONATE SODIUM\CHOLECALCIFEROL
     Indication: BONE DENSITY DECREASED
     Dosage: 70 MG/2800 IU, UNK
     Route: 048
     Dates: start: 20070114, end: 20080820

REACTIONS (14)
  - Open reduction of fracture [Unknown]
  - Femur fracture [Unknown]
  - Plantar fasciitis [Unknown]
  - Thyroid neoplasm [Unknown]
  - Hypercalcaemia [Unknown]
  - Hyperlipidaemia [Unknown]
  - Cataract operation [Unknown]
  - Hyperparathyroidism [Unknown]
  - Hypertension [Unknown]
  - Lacrimal duct procedure [Unknown]
  - Thyroid cyst [Unknown]
  - Cystopexy [Unknown]
  - Goitre [Unknown]
  - Anaemia [Unknown]

NARRATIVE: CASE EVENT DATE: 2003
